FAERS Safety Report 9523667 (Version 2)
Quarter: 2013Q4

REPORT INFORMATION
  Report Type: Spontaneous
  Country: US (occurrence: US)
  Receive Date: 20130913
  Receipt Date: 20131009
  Transmission Date: 20140711
  Serious: Yes (Hospitalization, Other)
  Sender: FDA-Public Use
  Company Number: US-GILEAD-2013-0083217

PATIENT
  Age: 72 Year
  Sex: Female

DRUGS (2)
  1. LETAIRIS [Suspect]
     Indication: PULMONARY HYPERTENSION
     Dosage: 5 MG, QD
     Route: 048
     Dates: start: 20090116
  2. LETAIRIS [Suspect]
     Indication: SCLERODERMA

REACTIONS (2)
  - Rectal prolapse [Unknown]
  - Urinary tract infection [Unknown]
